FAERS Safety Report 23446270 (Version 1)
Quarter: 2024Q1

REPORT INFORMATION
  Report Type: Spontaneous
  Country: US (occurrence: None)
  Receive Date: 20240125
  Receipt Date: 20240125
  Transmission Date: 20240409
  Serious: Yes (Other)
  Sender: FDA-Public Use
  Company Number: None

PATIENT
  Age: 83 Year
  Sex: Female

DRUGS (5)
  1. ADEMPAS [Suspect]
     Active Substance: RIOCIGUAT
     Indication: Pulmonary hypertension
     Dosage: FREQUENCY : 3 TIMES A DAY;?
     Route: 048
     Dates: start: 20230322
  2. ATORVASTATIN [Concomitant]
  3. LISINOPRIL [Concomitant]
  4. ELIQUIS [Concomitant]
     Active Substance: APIXABAN
  5. oxygen intranasal [Concomitant]

REACTIONS (1)
  - Syncope [None]

NARRATIVE: CASE EVENT DATE: 20240110
